FAERS Safety Report 7388267-1 (Version None)
Quarter: 2011Q2

REPORT INFORMATION
  Report Type: 
  Country: None (occurrence: None)
  Receive Date: 20110401
  Receipt Date: 20101014
  Transmission Date: 20111010
  Serious: Yes (Hospitalization, Other)
  Sender: FDA-Public Use
  Company Number: US-BAYER-201016085NA

PATIENT
  Sex: Female
  Weight: 90.703 kg

DRUGS (9)
  1. YAZ [Suspect]
     Indication: CONTRACEPTION
  2. YASMIN [Suspect]
     Dosage: UNK
     Dates: start: 20010101
  3. EFFEXOR XR [Concomitant]
  4. AZITHROMYCIN [Concomitant]
  5. YAZ [Suspect]
     Indication: PREMENSTRUAL SYNDROME
     Dosage: SAMPLES WERE RECEIVED FROM 2001-2008
     Route: 048
     Dates: start: 20010101
  6. NASONEX [Concomitant]
  7. REGLAN [Concomitant]
  8. XPECT [Concomitant]
  9. PROZAC [Concomitant]

REACTIONS (5)
  - GALLBLADDER CHOLESTEROLOSIS [None]
  - CHOLECYSTECTOMY [None]
  - CHOLECYSTITIS CHRONIC [None]
  - MENTAL DISORDER [None]
  - BILIARY DYSKINESIA [None]
